FAERS Safety Report 7793763-9 (Version None)
Quarter: 2011Q4

REPORT INFORMATION
  Report Type: 
  Country: None (occurrence: None)
  Receive Date: 20111003
  Receipt Date: 20110920
  Transmission Date: 20120403
  Serious: Yes (Other)
  Sender: FDA-Public Use
  Company Number: DE-MYLANLABS-2011S1019634

PATIENT
  Sex: Female
  Weight: 73 kg

DRUGS (1)
  1. AZATHIOPRINE [Suspect]
     Indication: CROHN'S DISEASE
     Route: 048
     Dates: start: 20110806, end: 20101210

REACTIONS (4)
  - DIZZINESS [None]
  - VOMITING [None]
  - MIGRAINE [None]
  - NAUSEA [None]
